FAERS Safety Report 9218764 (Version 3)
Quarter: 2013Q2

REPORT INFORMATION
  Report Type: Spontaneous
  Country: JP (occurrence: JP)
  Receive Date: 20130409
  Receipt Date: 20130429
  Transmission Date: 20140414
  Serious: Yes (Other)
  Sender: FDA-Public Use
  Company Number: JP-B.I. PHARMACEUTICALS,INC./RIDGEFIELD-2013-BI-09441NB

PATIENT
  Age: 94 Year
  Sex: Male

DRUGS (4)
  1. SPIRIVA [Suspect]
     Indication: CHRONIC OBSTRUCTIVE PULMONARY DISEASE
     Route: 055
  2. RENIVACE [Concomitant]
     Dosage: 5 MG
     Route: 048
     Dates: start: 20130404
  3. DIART [Concomitant]
     Dosage: 30 MG
     Route: 048
     Dates: start: 20130404
  4. LUPRAC [Concomitant]
     Dosage: 4 MG
     Route: 048
     Dates: start: 20130404

REACTIONS (1)
  - Cardiac failure [Unknown]
